FAERS Safety Report 17753906 (Version 1)
Quarter: 2020Q2

REPORT INFORMATION
  Report Type: Spontaneous
  Country: US (occurrence: US)
  Receive Date: 20200506
  Receipt Date: 20200506
  Transmission Date: 20200714
  Serious: No
  Sender: FDA-Public Use
  Company Number: US-ROCHE-2392674

PATIENT
  Age: 79 Year
  Sex: Male
  Weight: 78.09 kg

DRUGS (6)
  1. VITAMIN D [VITAMIN D NOS] [Concomitant]
     Active Substance: VITAMIN D NOS
     Dosage: ONGOING: YES
     Route: 048
  2. METFORMIN HCL [Concomitant]
     Active Substance: METFORMIN HYDROCHLORIDE
     Dosage: ONGOING: YES
     Route: 048
  3. LEVOTHYROXINE. [Concomitant]
     Active Substance: LEVOTHYROXINE
     Dosage: ONGOING: YES
     Route: 048
  4. ALPRAZOLAM. [Concomitant]
     Active Substance: ALPRAZOLAM
     Dosage: TWO IN THE EVENING ONGOING: YES
     Route: 065
  5. TOPIRAMATE. [Concomitant]
     Active Substance: TOPIRAMATE
     Dosage: ONGOING: YES
     Route: 048
  6. PIRFENIDONE. [Suspect]
     Active Substance: PIRFENIDONE
     Indication: IDIOPATHIC PULMONARY FIBROSIS
     Dosage: THREE TIMES DAILY
     Route: 048
     Dates: start: 20190520

REACTIONS (4)
  - Nasal disorder [Recovered/Resolved]
  - Epistaxis [Recovered/Resolved]
  - Nasal congestion [Recovered/Resolved]
  - Vascular rupture [Recovered/Resolved]

NARRATIVE: CASE EVENT DATE: 20190520
